FAERS Safety Report 9462244 (Version 1)
Quarter: 2013Q3

REPORT INFORMATION
  Report Type: Spontaneous
  Country: US (occurrence: None)
  Receive Date: 20130813
  Receipt Date: 20130813
  Transmission Date: 20140515
  Serious: Yes (Other)
  Sender: FDA-Public Use
  Company Number: 2013AP007155

PATIENT
  Sex: Female

DRUGS (6)
  1. ALENDRONATE SODIUM TABLETS [Suspect]
     Indication: OSTEOPOROSIS
     Dates: start: 200812, end: 201108
  2. ALENDRONATE SODIUM TABLETS [Suspect]
     Indication: OSTEITIS DEFORMANS
     Dates: start: 200812, end: 201108
  3. ACTONEL [Suspect]
     Indication: OSTEOPOROSIS
     Dates: start: 200312, end: 200602
  4. ACTONEL [Suspect]
     Indication: OSTEITIS DEFORMANS
     Dates: start: 200312, end: 200602
  5. ALENDRONATE SODIUM TABLETS [Suspect]
     Indication: OSTEOPOROSIS
     Dates: start: 200603, end: 200811
  6. ALENDRONATE SODIUM TABLETS [Suspect]
     Indication: OSTEITIS DEFORMANS
     Dates: start: 200603, end: 200811

REACTIONS (9)
  - Femur fracture [None]
  - Anxiety [None]
  - Pain [None]
  - Emotional distress [None]
  - Injury [None]
  - Mental disorder [None]
  - Anhedonia [None]
  - Fear [None]
  - Bone disorder [None]
